FAERS Safety Report 9886066 (Version 1)
Quarter: 2014Q1

REPORT INFORMATION
  Report Type: Spontaneous
  Country: IL (occurrence: IL)
  Receive Date: 20140210
  Receipt Date: 20140210
  Transmission Date: 20141002
  Serious: Yes (Hospitalization)
  Sender: FDA-Public Use
  Company Number: PHHY2014IL005011

PATIENT
  Age: 33 Year
  Sex: Female

DRUGS (4)
  1. METOPROLOL [Suspect]
  2. FUROSEMIDE [Suspect]
  3. ENOXAPARIN [Suspect]
     Dosage: 70 MG, UNK
     Route: 058
  4. ASPIRIN [Suspect]

REACTIONS (6)
  - Retroperitoneal haematoma [Unknown]
  - Haemoglobin decreased [Unknown]
  - Muscle haemorrhage [Unknown]
  - Abdominal pain [Unknown]
  - Normal newborn [Unknown]
  - Maternal exposure during pregnancy [Unknown]
